FAERS Safety Report 11829854 (Version 1)
Quarter: 2015Q4

REPORT INFORMATION
  Report Type: Spontaneous
  Country: US (occurrence: US)
  Receive Date: 20151212
  Receipt Date: 20151212
  Transmission Date: 20160305
  Serious: No
  Sender: FDA-Public Use
  Company Number: US-BAUSCH-BL-2015-020497

PATIENT
  Age: 57 Year
  Sex: Male
  Weight: 84.44 kg

DRUGS (1)
  1. TIMOPTIC [Suspect]
     Active Substance: TIMOLOL MALEATE
     Indication: GLAUCOMA
     Route: 047
     Dates: end: 2015

REACTIONS (6)
  - Fatigue [Recovering/Resolving]
  - Tremor [Recovering/Resolving]
  - Libido decreased [Not Recovered/Not Resolved]
  - Nervousness [Recovering/Resolving]
  - Blood testosterone decreased [Unknown]
  - Anxiety [Recovering/Resolving]

NARRATIVE: CASE EVENT DATE: 201403
